FAERS Safety Report 12861906 (Version 1)
Quarter: 2016Q4

REPORT INFORMATION
  Report Type: Spontaneous
  Country: US (occurrence: US)
  Receive Date: 20161019
  Receipt Date: 20161019
  Transmission Date: 20170207
  Serious: Yes (Hospitalization, Other)
  Sender: FDA-Public Use
  Company Number: US-PFIZER INC-2016479277

PATIENT
  Age: 44 Year
  Sex: Female

DRUGS (1)
  1. DIPHENHYDRAMINE HCL [Suspect]
     Active Substance: DIPHENHYDRAMINE HYDROCHLORIDE
     Indication: SUICIDAL IDEATION
     Dosage: 3 G, SINGLE (60 TABLETS X 50 MG)

REACTIONS (6)
  - Blood alcohol increased [Unknown]
  - Electrocardiogram QT prolonged [Unknown]
  - Ventricular tachycardia [Unknown]
  - Torsade de pointes [Unknown]
  - Intentional overdose [Unknown]
  - Suicidal behaviour [Unknown]
